FAERS Safety Report 9075522 (Version 1)
Quarter: 2013Q1

REPORT INFORMATION
  Report Type: Report from Study
  Country: US (occurrence: US)
  Receive Date: 20130129
  Receipt Date: 20130129
  Transmission Date: 20140127
  Serious: No
  Sender: FDA-Public Use
  Company Number: US-ABBOTT-12P-163-0943561-00

PATIENT
  Sex: Male
  Weight: 95.79 kg

DRUGS (4)
  1. HUMIRA 40 MG/0.8 ML PEN [Suspect]
     Indication: RHEUMATOID ARTHRITIS
  2. ORENCIA [Concomitant]
     Indication: RHEUMATOID ARTHRITIS
     Dates: start: 2012
  3. PROPANOLOL [Concomitant]
     Indication: HYPERTENSION
  4. RAPAFLO [Concomitant]
     Indication: PROSTATOMEGALY

REACTIONS (1)
  - Rash [Recovered/Resolved]
